FAERS Safety Report 8493313-8 (Version None)
Quarter: 2012Q3

REPORT INFORMATION
  Report Type: 
  Country: None (occurrence: None)
  Receive Date: 20120706
  Receipt Date: 20120703
  Transmission Date: 20120928
  Serious: No
  Sender: FDA-Public Use
  Company Number: US-PFIZER INC-2012142057

PATIENT
  Sex: Female
  Weight: 75.283 kg

DRUGS (3)
  1. PREMARIN [Suspect]
     Indication: ATROPHIC VULVOVAGINITIS
     Dosage: UNK,DAILY
     Route: 067
     Dates: start: 20120509, end: 20120501
  2. SIMVASTATIN [Concomitant]
     Indication: BLOOD CHOLESTEROL ABNORMAL
     Dosage: UNK
  3. PREDNISONE [Concomitant]
     Indication: FIBROMYALGIA
     Dosage: UNK

REACTIONS (2)
  - VULVOVAGINAL BURNING SENSATION [None]
  - HYPERSENSITIVITY [None]
